FAERS Safety Report 5413580-4 (Version None)
Quarter: 2007Q3

REPORT INFORMATION
  Report Type: 
  Country: None (occurrence: None)
  Receive Date: 20070814
  Receipt Date: 20070806
  Transmission Date: 20080115
  Serious: Yes (Hospitalization)
  Sender: FDA-Public Use
  Company Number: US-AMGEN-US235045

PATIENT
  Sex: Female

DRUGS (7)
  1. ENBREL [Suspect]
     Indication: PSORIASIS
     Route: 058
     Dates: start: 20060728
  2. LIPITOR [Concomitant]
     Route: 065
  3. RELAFEN [Concomitant]
     Route: 065
  4. FLONASE [Concomitant]
     Route: 065
  5. BENADRYL [Concomitant]
     Route: 065
  6. BUSPAR [Concomitant]
     Route: 065
  7. FLUNISOLIDE [Concomitant]
     Route: 065

REACTIONS (2)
  - NEPHROLITHIASIS [None]
  - URETERIC INJURY [None]
